FAERS Safety Report 26066579 (Version 2)
Quarter: 2025Q4

REPORT INFORMATION
  Report Type: Spontaneous
  Country: US (occurrence: US)
  Receive Date: 20251119
  Receipt Date: 20251121
  Transmission Date: 20260117
  Serious: No
  Sender: NOVO NORDISK
  Company Number: US-NOVOPROD-1462226

PATIENT
  Sex: Female

DRUGS (2)
  1. TRESIBA [Suspect]
     Active Substance: INSULIN DEGLUDEC
     Indication: Latent autoimmune diabetes in adults
     Dosage: 20 IU, QD
     Dates: start: 201805
  2. NOVOLOG [Suspect]
     Active Substance: INSULIN ASPART
     Indication: Latent autoimmune diabetes in adults
     Dosage: SLIDING SCALE 7 UNITS BASE, 15 MINUTES BEFORE EATING
     Route: 058
     Dates: start: 201805

REACTIONS (2)
  - Stress [Unknown]
  - Overweight [Unknown]
